FAERS Safety Report 6203142-3 (Version None)
Quarter: 2009Q2

REPORT INFORMATION
  Report Type: 
  Country: None (occurrence: None)
  Receive Date: 20090526
  Receipt Date: 20090526
  Transmission Date: 20091009
  Serious: Yes (Life-Threatening, Hospitalization, Other)
  Sender: FDA-Public Use
  Company Number: None

PATIENT
  Sex: Female
  Weight: 61.2356 kg

DRUGS (1)
  1. Z-PAK ZITHROMYCIN 250 MG PFIZER [Suspect]
     Indication: SINUSITIS
     Dosage: 1 TABLET 1 X DAY --5 DAYS PO
     Route: 048
     Dates: start: 20071104, end: 20071108

REACTIONS (11)
  - BONE MARROW TOXICITY [None]
  - CARDIO-RESPIRATORY ARREST [None]
  - DRUG INTERACTION [None]
  - HAEMODIALYSIS [None]
  - HEMIPLEGIA [None]
  - INFLAMMATION [None]
  - MEDICATION ERROR [None]
  - NEPHROPATHY TOXIC [None]
  - RENAL FAILURE ACUTE [None]
  - REVERSIBLE POSTERIOR LEUKOENCEPHALOPATHY SYNDROME [None]
  - THERAPEUTIC AGENT TOXICITY [None]
